FAERS Safety Report 17971134 (Version 1)
Quarter: 2020Q3

REPORT INFORMATION
  Report Type: Spontaneous
  Country: US (occurrence: US)
  Receive Date: 20200701
  Receipt Date: 20200701
  Transmission Date: 20201103
  Serious: Yes (Other)
  Sender: FDA-Public Use
  Company Number: US-NOVOPROD-736283

PATIENT
  Sex: Male

DRUGS (5)
  1. SUBOXONE [Concomitant]
     Active Substance: BUPRENORPHINE HYDROCHLORIDE\NALOXONE HYDROCHLORIDE
     Indication: PRODUCT USED FOR UNKNOWN INDICATION
     Dosage: UNK
  2. NORDITROPIN [Suspect]
     Active Substance: SOMATROPIN
     Indication: MUSCLE INJURY
  3. ZOLOFT [Concomitant]
     Active Substance: SERTRALINE HYDROCHLORIDE
     Indication: PRODUCT USED FOR UNKNOWN INDICATION
     Dosage: UNK
  4. NORDITROPIN [Suspect]
     Active Substance: SOMATROPIN
     Indication: HYPOTHALAMO-PITUITARY DISORDER
     Dosage: UNK
  5. XANAX [Concomitant]
     Active Substance: ALPRAZOLAM
     Indication: PRODUCT USED FOR UNKNOWN INDICATION
     Dosage: UNK

REACTIONS (9)
  - Craniocerebral injury [Unknown]
  - Nephrolithiasis [Unknown]
  - Back pain [Unknown]
  - Arthropathy [Unknown]
  - Product use in unapproved indication [Unknown]
  - Kidney infection [Unknown]
  - Anxiety [Unknown]
  - Panic attack [Unknown]
  - Renal disorder [Unknown]
